FAERS Safety Report 6304509-5 (Version None)
Quarter: 2009Q3

REPORT INFORMATION
  Report Type: 
  Country: None (occurrence: None)
  Receive Date: 20090811
  Receipt Date: 20090806
  Transmission Date: 20100115
  Serious: Yes (Life-Threatening, Other)
  Sender: FDA-Public Use
  Company Number: PHHY2009DE33272

PATIENT
  Age: 58 Year
  Sex: Male
  Weight: 80 kg

DRUGS (1)
  1. LEPONEX [Suspect]
     Indication: DELUSIONAL DISORDER, PERSECUTORY TYPE
     Dosage: 450 MG, 1 DAY
     Route: 048
     Dates: start: 20090127, end: 20090727

REACTIONS (6)
  - CARDIOGENIC SHOCK [None]
  - CONGESTIVE CARDIOMYOPATHY [None]
  - ENDOTRACHEAL INTUBATION [None]
  - RESUSCITATION [None]
  - SEDATION [None]
  - TACHYARRHYTHMIA [None]
